FAERS Safety Report 16078634 (Version 2)
Quarter: 2019Q3

REPORT INFORMATION
  Report Type: Spontaneous
  Country: US (occurrence: US)
  Receive Date: 20190315
  Receipt Date: 20190708
  Transmission Date: 20191004
  Serious: Yes (Other)
  Sender: FDA-Public Use
  Company Number: US-ASTRAZENECA-2019SE38954

PATIENT
  Sex: Female
  Weight: 65.8 kg

DRUGS (17)
  1. CEPHALEXIN. [Concomitant]
     Active Substance: CEPHALEXIN
     Dates: start: 2011, end: 2014
  2. IBUPROFEN. [Concomitant]
     Active Substance: IBUPROFEN
  3. NEXIUM [Suspect]
     Active Substance: ESOMEPRAZOLE MAGNESIUM
     Indication: GASTROOESOPHAGEAL REFLUX DISEASE
     Route: 048
     Dates: start: 2002
  4. NEXIUM [Suspect]
     Active Substance: ESOMEPRAZOLE MAGNESIUM
     Indication: GASTROOESOPHAGEAL REFLUX DISEASE
     Route: 048
     Dates: start: 20171017
  5. FLUTICASONE. [Concomitant]
     Active Substance: FLUTICASONE
     Indication: HYPERSENSITIVITY
     Dates: start: 2011
  6. LORATADINE. [Concomitant]
     Active Substance: LORATADINE
  7. NEXIUM [Suspect]
     Active Substance: ESOMEPRAZOLE MAGNESIUM
     Indication: GASTROOESOPHAGEAL REFLUX DISEASE
     Route: 048
     Dates: start: 2002, end: 2018
  8. LISINOPRIL. [Concomitant]
     Active Substance: LISINOPRIL
     Indication: HYPERTENSION
     Dates: start: 2016
  9. TRAMADOL. [Concomitant]
     Active Substance: TRAMADOL
  10. ONDANSETRON [Concomitant]
     Active Substance: ONDANSETRON
  11. PRILOSEC [Suspect]
     Active Substance: OMEPRAZOLE MAGNESIUM
     Indication: GASTROOESOPHAGEAL REFLUX DISEASE
     Route: 048
     Dates: start: 2002
  12. CLONAZEPAM. [Concomitant]
     Active Substance: CLONAZEPAM
     Dates: start: 2011
  13. CEFACLOR. [Concomitant]
     Active Substance: CEFACLOR
     Indication: SEIZURE
     Dates: start: 2011
  14. PREVACID [Suspect]
     Active Substance: LANSOPRAZOLE
     Indication: GASTROOESOPHAGEAL REFLUX DISEASE
     Route: 065
     Dates: start: 2002
  15. TYLENOL [Concomitant]
     Active Substance: ACETAMINOPHEN
     Indication: PAIN
     Dates: start: 2016
  16. CEPHALEXIN. [Concomitant]
     Active Substance: CEPHALEXIN
  17. ACETAMINOPHEN. [Concomitant]
     Active Substance: ACETAMINOPHEN

REACTIONS (2)
  - Chronic kidney disease [Not Recovered/Not Resolved]
  - Acute kidney injury [Not Recovered/Not Resolved]
